FAERS Safety Report 6161821-0 (Version None)
Quarter: 2009Q2

REPORT INFORMATION
  Report Type: 
  Country: None (occurrence: None)
  Receive Date: 20090417
  Receipt Date: 20090402
  Transmission Date: 20091009
  Serious: Yes (Death)
  Sender: FDA-Public Use
  Company Number: 2009S1005873

PATIENT
  Age: 57 Year
  Sex: Female

DRUGS (5)
  1. PARACETAMOL [Suspect]
     Indication: HEADACHE
     Dosage: 1 GM; WEEKLY
  2. LEVOTHYROXINE SODIUM [Suspect]
     Indication: HYPOTHYROIDISM
     Dosage: 50 UG;DAILY;ORAL, 100UG;DAILY;ORAL, 150UG;DAILY;ORAL
     Route: 048
  3. SUNITINIB MALATE [Suspect]
     Indication: GASTROINTESTINAL CANCER METASTATIC
     Dosage: 50 MG; DAILY
     Dates: start: 20040701
  4. TYLENOL (CAPLET) [Suspect]
     Indication: INSOMNIA
     Dosage: 500 MG; AT BEDTIME
  5. ALBUTEROL [Concomitant]

REACTIONS (19)
  - ACTIVATED PARTIAL THROMBOPLASTIN TIME PROLONGED [None]
  - ANAEMIA MACROCYTIC [None]
  - ANOREXIA [None]
  - DIARRHOEA [None]
  - DRUG LEVEL BELOW THERAPEUTIC [None]
  - DYSGEUSIA [None]
  - GLOSSODYNIA [None]
  - HEADACHE [None]
  - HEPATIC FAILURE [None]
  - HEPATIC HAEMORRHAGE [None]
  - HEPATIC NECROSIS [None]
  - HEPATIC STEATOSIS [None]
  - HEPATOCELLULAR INJURY [None]
  - HYPOTHYROIDISM [None]
  - INSOMNIA [None]
  - LEUKOPENIA [None]
  - METABOLIC ACIDOSIS [None]
  - PROTHROMBIN TIME PROLONGED [None]
  - RENAL FAILURE [None]
